FAERS Safety Report 13503926 (Version 1)
Quarter: 2017Q2

REPORT INFORMATION
  Report Type: Spontaneous
  Country: US (occurrence: US)
  Receive Date: 20170502
  Receipt Date: 20170502
  Transmission Date: 20170830
  Serious: No
  Sender: FDA-Public Use
  Company Number: US-IMPAX LABORATORIES, INC-2017-IPXL-00114

PATIENT
  Sex: Female

DRUGS (1)
  1. DEMECLOCYCLINE HYDROCHLORIDE. [Suspect]
     Active Substance: DEMECLOCYCLINE HYDROCHLORIDE
     Indication: PRODUCT USED FOR UNKNOWN INDICATION
     Dosage: UNK
     Route: 065

REACTIONS (1)
  - Pharyngeal oedema [Unknown]
